FAERS Safety Report 13404448 (Version 1)
Quarter: 2017Q2

REPORT INFORMATION
  Report Type: Spontaneous
  Country: US (occurrence: US)
  Receive Date: 20170405
  Receipt Date: 20170405
  Transmission Date: 20170830
  Serious: Yes (Disabling)
  Sender: FDA-Public Use
  Company Number: None

PATIENT
  Age: 29 Year
  Sex: Female
  Weight: 58.5 kg

DRUGS (8)
  1. MIRENA [Concomitant]
     Active Substance: LEVONORGESTREL
  2. LOW DOSE NALTREXONE [Concomitant]
     Active Substance: NALTREXONE
  3. DULERA [Concomitant]
     Active Substance: FORMOTEROL FUMARATE DIHYDRATE\MOMETASONE FUROATE
  4. LIQUID VITAMIN D3 [Concomitant]
  5. ZANTAC [Concomitant]
     Active Substance: RANITIDINE HYDROCHLORIDE
  6. AMLODEPINE [Concomitant]
  7. PRENATAL VITAMIN [Concomitant]
     Active Substance: VITAMINS
  8. MONTELUKAST [Suspect]
     Active Substance: MONTELUKAST SODIUM
     Indication: ASTHMA
     Dosage: ?          QUANTITY:1 TABLET(S);?
     Route: 048

REACTIONS (2)
  - Skin exfoliation [None]
  - Wound [None]

NARRATIVE: CASE EVENT DATE: 20160701
